FAERS Safety Report 15075505 (Version 1)
Quarter: 2018Q2

REPORT INFORMATION
  Report Type: Report from Study
  Country: US (occurrence: US)
  Receive Date: 20180627
  Receipt Date: 20180627
  Transmission Date: 20180711
  Serious: No
  Sender: FDA-Public Use
  Company Number: US-SAOL THERAPEUTICS-2018SAO00175

PATIENT
  Age: 53 Year
  Sex: Female

DRUGS (6)
  1. HYDROMORPHONE [Suspect]
     Active Substance: HYDROMORPHONE
     Dosage: 2.100 MG, \DAY
     Route: 037
     Dates: start: 20170620
  2. BUPIVACAINE. [Suspect]
     Active Substance: BUPIVACAINE
     Dosage: 2.692 MG, \DAY
     Dates: start: 20170620
  3. BACLOFEN. [Suspect]
     Active Substance: BACLOFEN
     Dosage: 5.249 ?G, \DAY
     Route: 037
     Dates: start: 20170720
  4. HYDROMORPHONE [Suspect]
     Active Substance: HYDROMORPHONE
     Dosage: 2.692 MG, \DAY- MAX
     Dates: start: 20170620
  5. BUPIVACAINE. [Suspect]
     Active Substance: BUPIVACAINE
     Dosage: 2.100 MG, \DAY
     Route: 037
     Dates: start: 20170620
  6. BACLOFEN. [Suspect]
     Active Substance: BACLOFEN
     Dosage: 6.729 ?G, \DAY - MAX
     Route: 037
     Dates: start: 20170720

REACTIONS (1)
  - Hypersensitivity [Recovered/Resolved]

NARRATIVE: CASE EVENT DATE: 20180130
